FAERS Safety Report 11056127 (Version 1)
Quarter: 2015Q2

REPORT INFORMATION
  Report Type: Spontaneous
  Country: US (occurrence: US)
  Receive Date: 20150422
  Receipt Date: 20150422
  Transmission Date: 20150821
  Serious: Yes (Other)
  Sender: FDA-Public Use
  Company Number: US-ASTRAZENECA-2015SE35234

PATIENT
  Age: 54 Year
  Sex: Female
  Weight: 91 kg

DRUGS (10)
  1. GEODON [Suspect]
     Active Substance: ZIPRASIDONE HYDROCHLORIDE\ZIPRASIDONE MESYLATE
     Indication: SCHIZOPHRENIA, PARANOID TYPE
     Dosage: PFIZER; 240 MG ONCE DAILY
     Route: 065
     Dates: start: 2000
  2. SEROQUEL [Suspect]
     Active Substance: QUETIAPINE FUMARATE
     Route: 048
     Dates: start: 2005
  3. VISTARIL [Suspect]
     Active Substance: HYDROXYZINE PAMOATE
     Indication: SLEEP DISORDER
     Dosage: PFIZER; 2 50MG AT BEDTIME AND AS NEEDED WHEN GOING OUT
     Route: 065
  4. PROZAC [Suspect]
     Active Substance: FLUOXETINE HYDROCHLORIDE
     Indication: ANTIDEPRESSANT THERAPY
     Route: 065
     Dates: start: 1981
  5. VISTARIL [Suspect]
     Active Substance: HYDROXYZINE PAMOATE
     Indication: FEELING COLD
     Dosage: PFIZER; 2 50MG AT BEDTIME AND AS NEEDED WHEN GOING OUT
     Route: 065
  6. DIAZEPAM. [Suspect]
     Active Substance: DIAZEPAM
     Indication: ANXIETY
     Route: 065
  7. RISPERDAL [Suspect]
     Active Substance: RISPERIDONE
     Route: 065
     Dates: start: 1981
  8. NEURONTIN [Concomitant]
     Active Substance: GABAPENTIN
  9. EFFEXOR XR [Concomitant]
     Active Substance: VENLAFAXINE HYDROCHLORIDE
  10. TRAVATAN [Concomitant]
     Active Substance: TRAVOPROST

REACTIONS (11)
  - Blood glucose abnormal [Unknown]
  - Increased appetite [Unknown]
  - Seizure [Recovered/Resolved]
  - Hallucination [Unknown]
  - Micturition urgency [Unknown]
  - Empyema [Recovered/Resolved]
  - Somnolence [Unknown]
  - Muscle disorder [Recovered/Resolved]
  - Intentional product misuse [Unknown]
  - Apparent death [Recovered/Resolved]
  - Weight increased [Unknown]

NARRATIVE: CASE EVENT DATE: 2000
